FAERS Safety Report 11395917 (Version 1)
Quarter: 2015Q3

REPORT INFORMATION
  Report Type: Spontaneous
  Country: US (occurrence: None)
  Receive Date: 20150818
  Receipt Date: 20150818
  Transmission Date: 20151125
  Serious: Yes (Hospitalization)
  Sender: FDA-Public Use
  Company Number: None

PATIENT
  Age: 73 Year
  Sex: Male
  Weight: 92.08 kg

DRUGS (17)
  1. RESTASIS [Suspect]
     Active Substance: CYCLOSPORINE
     Indication: DRY EYE
  2. PROVOCHOLINE [Concomitant]
     Active Substance: METHACHOLINE CHLORIDE
  3. ONDANSETRON [Concomitant]
     Active Substance: ONDANSETRON
  4. WARFARIN [Concomitant]
     Active Substance: WARFARIN
  5. MIRALAX [Concomitant]
     Active Substance: POLYETHYLENE GLYCOL 3350
  6. HCZT [Concomitant]
  7. VITAMIN B [Concomitant]
     Active Substance: VITAMIN B
  8. VITAMIN E [Concomitant]
     Active Substance: .ALPHA.-TOCOPHEROL
  9. CENTRUM SILVER [Concomitant]
     Active Substance: VITAMINS
  10. SENEKOT [Concomitant]
  11. LASIX [Concomitant]
     Active Substance: FUROSEMIDE
  12. COLASE [Concomitant]
  13. LOVENOX [Concomitant]
     Active Substance: ENOXAPARIN SODIUM
  14. POTASSIUM [Concomitant]
     Active Substance: POTASSIUM
  15. OCCUVITE [Concomitant]
  16. PREVECID [Concomitant]
  17. PROCHROLOPERAZINE [Concomitant]

REACTIONS (3)
  - Reading disorder [None]
  - Visual impairment [None]
  - Eye irritation [None]

NARRATIVE: CASE EVENT DATE: 20150706
